FAERS Safety Report 9227437 (Version 1)
Quarter: 2013Q2

REPORT INFORMATION
  Report Type: Report from Study
  Country: NL (occurrence: NL)
  Receive Date: 20130412
  Receipt Date: 20130412
  Transmission Date: 20140414
  Serious: Yes (Other)
  Sender: FDA-Public Use
  Company Number: NL-ASTELLAS-2013EU001175

PATIENT
  Sex: Male

DRUGS (3)
  1. ENZALUTAMIDE [Suspect]
     Dosage: UNK
     Route: 065
     Dates: start: 20120706
  2. APO-PREDNISONE [Concomitant]
     Dosage: 10 MG, BID
     Route: 065
  3. METHOTREXATE [Concomitant]
     Dosage: 1 DF, WEEKLY
     Route: 065
     Dates: start: 20130115

REACTIONS (4)
  - Pneumonia [Unknown]
  - Lymphangiosis carcinomatosa [Unknown]
  - Toxicity to various agents [Unknown]
  - Pulmonary fibrosis [Unknown]
